FAERS Safety Report 20390126 (Version 1)
Quarter: 2022Q1

REPORT INFORMATION
  Report Type: Spontaneous
  Country: JP (occurrence: JP)
  Receive Date: 20220128
  Receipt Date: 20220128
  Transmission Date: 20220423
  Serious: Yes (Other)
  Sender: FDA-Public Use
  Company Number: JP-NOVARTISPH-NVSJ2022JP001860

PATIENT
  Age: 56 Year
  Sex: Male

DRUGS (5)
  1. ELTROMBOPAG [Suspect]
     Active Substance: ELTROMBOPAG
     Indication: Aplastic anaemia
     Dosage: 50 MG
     Route: 065
  2. CYCLOSPORINE [Suspect]
     Active Substance: CYCLOSPORINE
     Indication: Aplastic anaemia
     Dosage: UNK
     Route: 065
  3. LAPINE T-LYMPHOCYTE IMMUNE GLOBULIN [Concomitant]
     Active Substance: LAPINE T-LYMPHOCYTE IMMUNE GLOBULIN
     Indication: Aplastic anaemia
     Dosage: 3.5 MG/KG
     Route: 065
  4. METHENOLONE ACETATE [Concomitant]
     Active Substance: METHENOLONE ACETATE
     Indication: Aplastic anaemia
     Dosage: UNK
     Route: 065
  5. DARBEPOETIN ALFA [Concomitant]
     Active Substance: DARBEPOETIN ALFA
     Indication: Aplastic anaemia
     Dosage: UNK
     Route: 065

REACTIONS (8)
  - Febrile neutropenia [Unknown]
  - Pyrexia [Unknown]
  - Myelodysplastic syndrome [Unknown]
  - Bacteraemia [Unknown]
  - Cytomegalovirus chorioretinitis [Unknown]
  - Anaemia [Unknown]
  - Pneumonia [Unknown]
  - Product use in unapproved indication [Unknown]
